FAERS Safety Report 6239558-9 (Version None)
Quarter: 2009Q2

REPORT INFORMATION
  Report Type: 
  Country: None (occurrence: None)
  Receive Date: 20090619
  Receipt Date: 20090608
  Transmission Date: 20091009
  Serious: Yes (Other)
  Sender: FDA-Public Use
  Company Number: ADR4012009 (BFARM REF NO.: DE-BFARM-08143560)

PATIENT
  Age: 51 Year
  Sex: Female

DRUGS (3)
  1. CIPROFLOXACIN [Suspect]
     Indication: PERIODONTITIS
     Dosage: 1000 MG (500 MG, 2 IN 1 DAY), ORAL
     Route: 048
     Dates: start: 20080922, end: 20080926
  2. METRONIDAZOLE [Concomitant]
  3. CALCIUM WITH VITAMIN D [Concomitant]

REACTIONS (2)
  - DIARRHOEA HAEMORRHAGIC [None]
  - TENDON PAIN [None]
